FAERS Safety Report 15305033 (Version 1)
Quarter: 2018Q3

REPORT INFORMATION
  Report Type: Spontaneous
  Country: FR (occurrence: FR)
  Receive Date: 20180822
  Receipt Date: 20180822
  Transmission Date: 20181010
  Serious: Yes (Hospitalization)
  Sender: FDA-Public Use
  Company Number: FR-CONCORDIA PHARMACEUTICALS INC.-E2B_00016152

PATIENT
  Age: 79 Year
  Sex: Female
  Weight: 60 kg

DRUGS (7)
  1. PROLIA 60 MG, SOLUTION INJECTABLE [Concomitant]
     Route: 042
  2. GELTIM LP 1 MG/G, GEL OPHTALMIQUE EN R?CIPIENT UNIDOSE [Concomitant]
     Route: 047
  3. DIGOXIN. [Suspect]
     Active Substance: DIGOXIN
     Indication: ATRIAL FIBRILLATION
     Route: 048
     Dates: end: 20180726
  4. DEPAKINE [Concomitant]
     Active Substance: VALPROATE SODIUM
     Route: 048
  5. PRADAXA 150 MG, G?LULE [Concomitant]
     Route: 048
  6. CALTRATE WITH VITAMIN D [Concomitant]
     Active Substance: CALCIUM CARBONATE\CHOLECALCIFEROL
     Route: 048
  7. MONOPROST 50 MICROGRAMMES/ML, COLLYRE EN SOLUTION EN R?CIPIENT UNIDOSE [Concomitant]
     Route: 047

REACTIONS (4)
  - Loss of consciousness [Recovered/Resolved]
  - Malaise [Recovered/Resolved]
  - Cardioactive drug level increased [Recovered/Resolved]
  - Bradycardia [Recovered/Resolved]

NARRATIVE: CASE EVENT DATE: 20180726
